FAERS Safety Report 4750809-X (Version None)
Quarter: 2005Q3

REPORT INFORMATION
  Report Type: 
  Country: None (occurrence: None)
  Receive Date: 20050822
  Receipt Date: 20050810
  Transmission Date: 20060218
  Serious: Yes (Death)
  Sender: FDA-Public Use
  Company Number: 2005-131338-NL

PATIENT
  Sex: Female

DRUGS (1)
  1. DESOGEN [Suspect]
     Dosage: ORAL
     Route: 048

REACTIONS (3)
  - INJURY [None]
  - PULMONARY EMBOLISM [None]
  - THROMBOSIS [None]
